FAERS Safety Report 6306218-5 (Version None)
Quarter: 2009Q3

REPORT INFORMATION
  Report Type: 
  Country: None (occurrence: None)
  Receive Date: 20090810
  Receipt Date: 20090729
  Transmission Date: 20100115
  Serious: Yes (Other)
  Sender: FDA-Public Use
  Company Number: ALL1-2009-02097

PATIENT
  Sex: Male

DRUGS (1)
  1. MAS       (MIXED AMPHETAMINE SALTS) [Suspect]
     Indication: DRUG USE FOR UNKNOWN INDICATION
     Dosage: MG, ORAL
     Route: 048
     Dates: start: 20090720, end: 20090728

REACTIONS (9)
  - ABNORMAL BEHAVIOUR [None]
  - AFFECTIVE DISORDER [None]
  - ANGER [None]
  - BRUXISM [None]
  - CHEST DISCOMFORT [None]
  - DIARRHOEA HAEMORRHAGIC [None]
  - DISTURBANCE IN ATTENTION [None]
  - FRUSTRATION [None]
  - HEADACHE [None]
